FAERS Safety Report 25286947 (Version 1)
Quarter: 2025Q2

REPORT INFORMATION
  Report Type: Spontaneous
  Country: US (occurrence: None)
  Receive Date: 20250508
  Receipt Date: 20250508
  Transmission Date: 20250716
  Serious: Yes (Hospitalization)
  Sender: FDA-CTU
  Company Number: None

PATIENT
  Age: 39 Year
  Sex: Male

DRUGS (1)
  1. HUMIRA [Suspect]
     Active Substance: ADALIMUMAB
     Indication: Crohn^s disease
     Dosage: 40 MG ONCE WEEKLY SUBCUTANEOUS?
     Route: 058
     Dates: start: 20210519

REACTIONS (2)
  - Pain [None]
  - Diarrhoea [None]

NARRATIVE: CASE EVENT DATE: 20250507
